FAERS Safety Report 25312324 (Version 1)
Quarter: 2025Q2

REPORT INFORMATION
  Report Type: Spontaneous
  Country: DE (occurrence: DE)
  Receive Date: 20250514
  Receipt Date: 20250514
  Transmission Date: 20250717
  Serious: Yes (Congenital Anomaly)
  Sender: ZAMBON
  Company Number: DE-EMB-M201904861-1

PATIENT

DRUGS (5)
  1. FOSFOMYCIN TROMETHAMINE [Suspect]
     Active Substance: FOSFOMYCIN TROMETHAMINE
     Indication: Urinary tract infection
     Route: 064
     Dates: start: 201812, end: 201812
  2. FLUTIFORM [Suspect]
     Active Substance: FLUTIFORM
     Indication: Asthma
     Dates: start: 201811, end: 201908
  3. ISOTRETINOIN [Suspect]
     Active Substance: ISOTRETINOIN
     Indication: Acne
     Dosage: 10 MG, TID
     Route: 065
     Dates: start: 201811, end: 201904
  4. MOMETASONE [Concomitant]
     Active Substance: MOMETASONE
     Indication: Seasonal allergy
     Dosage: 100 UG, BID
     Route: 064
     Dates: start: 20190301, end: 201904
  5. LORATADINE [Concomitant]
     Active Substance: LORATADINE
     Indication: Multiple allergies
     Route: 064
     Dates: start: 201903, end: 201906

REACTIONS (3)
  - Dermoid cyst [Unknown]
  - Paternal exposure during pregnancy [Unknown]
  - Foetal exposure during pregnancy [Unknown]
